FAERS Safety Report 24184128 (Version 1)
Quarter: 2024Q3

REPORT INFORMATION
  Report Type: Spontaneous
  Country: CN (occurrence: CN)
  Receive Date: 20240807
  Receipt Date: 20240807
  Transmission Date: 20241016
  Serious: Yes (Other)
  Sender: BAXTER
  Company Number: None

PATIENT
  Age: 52 Year
  Sex: Female

DRUGS (8)
  1. CYCLOPHOSPHAMIDE [Suspect]
     Active Substance: CYCLOPHOSPHAMIDE
     Indication: Breast cancer female
     Dosage: 0.8 G, ONE TIME IN ONE DAY DILUTED WITH 0.9% SODIUM CHLORIDE 100 ML, (40-50 DROPS/MIN), 4TH CHEMOTHE
     Route: 041
     Dates: start: 20240617, end: 20240618
  2. CYCLOPHOSPHAMIDE [Suspect]
     Active Substance: CYCLOPHOSPHAMIDE
     Indication: Neoplasm malignant
  3. CYCLOPHOSPHAMIDE [Suspect]
     Active Substance: CYCLOPHOSPHAMIDE
     Indication: Chemotherapy
  4. SODIUM CHLORIDE [Suspect]
     Active Substance: SODIUM CHLORIDE
     Indication: Medication dilution
     Dosage: 100 ML, ONE TIME IN ONE DAY, INJECTION, USED TO DILUTE CYCLOPHOSPHAMIDE 0.8 G, (50-60 DROPS/MIN) AWA
     Route: 041
     Dates: start: 20240617, end: 20240618
  5. DEXTROSE [Suspect]
     Active Substance: DEXTROSE\DEXTROSE MONOHYDRATE
     Indication: Medication dilution
     Dosage: 100 ML, ONE TIME IN ONE DAY, INJECTION, USED TO DILUTE EPIRUBICIN HYDROCHLORIDE 140 MG,  (50-60 DROP
     Route: 041
     Dates: start: 20240617, end: 20240618
  6. EPIRUBICIN HYDROCHLORIDE [Suspect]
     Active Substance: EPIRUBICIN HYDROCHLORIDE
     Indication: Breast cancer female
     Dosage: 140 MG, ONE TIME IN ONE DAY DILUTED WITH 5% GLUCOSE 100 ML, (50-60 DROPS/MIN) AWAY FROM LIGHT, 4TH C
     Route: 041
     Dates: start: 20240617, end: 20240618
  7. EPIRUBICIN HYDROCHLORIDE [Suspect]
     Active Substance: EPIRUBICIN HYDROCHLORIDE
     Indication: Neoplasm malignant
  8. EPIRUBICIN HYDROCHLORIDE [Suspect]
     Active Substance: EPIRUBICIN HYDROCHLORIDE
     Indication: Chemotherapy

REACTIONS (2)
  - Myelosuppression [Recovering/Resolving]
  - Dizziness [Unknown]

NARRATIVE: CASE EVENT DATE: 20240620
